FAERS Safety Report 17205282 (Version 1)
Quarter: 2019Q4

REPORT INFORMATION
  Report Type: Report from Study
  Country: DE (occurrence: DE)
  Receive Date: 20191227
  Receipt Date: 20191227
  Transmission Date: 20200122
  Serious: Yes (Death, Hospitalization)
  Sender: FDA-Public Use
  Company Number: DE-ROCHE-2308019

PATIENT
  Age: 83 Year
  Sex: Female
  Weight: 72 kg

DRUGS (3)
  1. BEVACIZUMAB. [Suspect]
     Active Substance: BEVACIZUMAB
     Indication: BREAST CANCER
     Dosage: MOST RECENT DOSE
     Route: 042
     Dates: start: 20190308
  2. CAPECITABINE. [Suspect]
     Active Substance: CAPECITABINE
     Route: 048
     Dates: start: 20190601, end: 20190726
  3. CAPECITABINE. [Suspect]
     Active Substance: CAPECITABINE
     Indication: BREAST CANCER
     Dosage: ON 11/MAR/2019, MOST RECENT DOSE RECEIVED 500 MG.
     Route: 048
     Dates: start: 20190308, end: 20190531

REACTIONS (2)
  - Presyncope [Fatal]
  - Diarrhoea [Fatal]

NARRATIVE: CASE EVENT DATE: 20190311
